FAERS Safety Report 15080519 (Version 1)
Quarter: 2018Q2

REPORT INFORMATION
  Report Type: Report from Study
  Country: TW (occurrence: TW)
  Receive Date: 20180628
  Receipt Date: 20180628
  Transmission Date: 20180711
  Serious: Yes (Hospitalization, Other)
  Sender: FDA-Public Use
  Company Number: TW-BRISTOL-MYERS SQUIBB COMPANY-BMS-2018-057218

PATIENT
  Age: 63 Year
  Sex: Male

DRUGS (1)
  1. ABATACEPT [Suspect]
     Active Substance: ABATACEPT
     Indication: RHEUMATOID ARTHRITIS
     Dosage: 750 MG, QMO
     Route: 041
     Dates: start: 20160805

REACTIONS (7)
  - Vomiting [Recovering/Resolving]
  - Tinnitus [Recovering/Resolving]
  - Lacunar infarction [Recovering/Resolving]
  - Vertigo [Recovering/Resolving]
  - Gait disturbance [Recovering/Resolving]
  - Cerebral atrophy [Recovering/Resolving]
  - Dizziness [Recovered/Resolved]

NARRATIVE: CASE EVENT DATE: 20180614
